FAERS Safety Report 13997678 (Version 1)
Quarter: 2017Q3

REPORT INFORMATION
  Report Type: Spontaneous
  Country: FR (occurrence: FR)
  Receive Date: 20170921
  Receipt Date: 20170921
  Transmission Date: 20171128
  Serious: Yes (Hospitalization)
  Sender: FDA-Public Use
  Company Number: FR-ASTRAZENECA-2017SE95723

PATIENT
  Age: 75 Year

DRUGS (3)
  1. ZOMETA [Suspect]
     Active Substance: ZOLEDRONIC ACID
     Indication: HYPERCALCAEMIA
     Dosage: 4 MG IN A SINGLE DOSE
     Route: 042
     Dates: start: 20170821, end: 20170821
  2. TRAMADOL. [Suspect]
     Active Substance: TRAMADOL
     Indication: PAIN
     Route: 042
     Dates: start: 20170821, end: 20170821
  3. INEXIUM [Suspect]
     Active Substance: ESOMEPRAZOLE
     Indication: HAEMORRHAGE PROPHYLAXIS
     Route: 042
     Dates: start: 20170821, end: 20170821

REACTIONS (1)
  - Acute generalised exanthematous pustulosis [Recovered/Resolved]

NARRATIVE: CASE EVENT DATE: 20170822
